FAERS Safety Report 17313766 (Version 6)
Quarter: 2023Q2

REPORT INFORMATION
  Report Type: Spontaneous
  Country: US (occurrence: US)
  Receive Date: 20200124
  Receipt Date: 20230515
  Transmission Date: 20230721
  Serious: Yes (Other)
  Sender: FDA-Public Use
  Company Number: US-GILEAD-2020-0448029

PATIENT
  Age: 44 Year
  Sex: Male
  Weight: 230 kg

DRUGS (62)
  1. STRIBILD [Suspect]
     Active Substance: COBICISTAT\ELVITEGRAVIR\EMTRICITABINE\TENOFOVIR DISOPROXIL FUMARATE
     Indication: HIV infection
     Dosage: 1 DOSAGE FORM, QD
     Route: 048
     Dates: start: 201310, end: 2018
  2. STRIBILD [Suspect]
     Active Substance: COBICISTAT\ELVITEGRAVIR\EMTRICITABINE\TENOFOVIR DISOPROXIL FUMARATE
     Dosage: UNK
     Route: 065
     Dates: start: 201110, end: 2018
  3. STRIBILD [Suspect]
     Active Substance: COBICISTAT\ELVITEGRAVIR\EMTRICITABINE\TENOFOVIR DISOPROXIL FUMARATE
     Dosage: UNK
     Route: 048
     Dates: start: 201310, end: 2014
  4. TRUVADA [Suspect]
     Active Substance: EMTRICITABINE\TENOFOVIR DISOPROXIL FUMARATE
     Indication: HIV infection
     Dosage: 1 DOSAGE FORM, QD
     Route: 048
     Dates: start: 201110, end: 201310
  5. TRUVADA [Suspect]
     Active Substance: EMTRICITABINE\TENOFOVIR DISOPROXIL FUMARATE
     Dosage: UNK
     Route: 048
     Dates: start: 2006, end: 201310
  6. ATRIPLA [Suspect]
     Active Substance: EFAVIRENZ\EMTRICITABINE\TENOFOVIR DISOPROXIL FUMARATE
     Indication: HIV infection
     Dosage: UNK
     Route: 048
     Dates: start: 2006, end: 201110
  7. ATRIPLA [Suspect]
     Active Substance: EFAVIRENZ\EMTRICITABINE\TENOFOVIR DISOPROXIL FUMARATE
     Dosage: UNK
     Route: 048
     Dates: start: 2006, end: 2011
  8. VIREAD [Suspect]
     Active Substance: TENOFOVIR DISOPROXIL FUMARATE
     Indication: HIV infection
     Dosage: UNK
     Route: 065
  9. GENVOYA [Concomitant]
     Active Substance: COBICISTAT\ELVITEGRAVIR\EMTRICITABINE\TENOFOVIR ALAFENAMIDE FUMARATE
  10. BIKTARVY [Concomitant]
     Active Substance: BICTEGRAVIR SODIUM\EMTRICITABINE\TENOFOVIR ALAFENAMIDE FUMARATE
  11. CLINDAMYCIN [Concomitant]
     Active Substance: CLINDAMYCIN
  12. FAMOTIDINE [Concomitant]
     Active Substance: FAMOTIDINE
  13. AZITHROMYCIN [Concomitant]
     Active Substance: AZITHROMYCIN
  14. OXYCODONE [Concomitant]
     Active Substance: OXYCODONE
  15. POLYETHYLENE GLYCOLS [Concomitant]
     Active Substance: POLYETHYLENE GLYCOLS
  16. CONTOUR [ESOMEPRAZOLE SODIUM] [Concomitant]
  17. IMIQUIMOD [Concomitant]
     Active Substance: IMIQUIMOD
  18. NORTRIPTYLINE [Concomitant]
     Active Substance: NORTRIPTYLINE
  19. PROPRANOLOL [Concomitant]
     Active Substance: PROPRANOLOL HYDROCHLORIDE
  20. METFORMIN [Concomitant]
     Active Substance: METFORMIN HYDROCHLORIDE
  21. MORPHINE SULFATE [Concomitant]
     Active Substance: MORPHINE SULFATE
  22. NORVIR [Concomitant]
     Active Substance: RITONAVIR
  23. NICODERM CQ [Concomitant]
     Active Substance: NICOTINE
  24. ANDROGEL [Concomitant]
     Active Substance: TESTOSTERONE
  25. LAMOTRIGINE [Concomitant]
     Active Substance: LAMOTRIGINE
  26. MIRTAZAPINE [Concomitant]
     Active Substance: MIRTAZAPINE
  27. RISPERIDONE [Concomitant]
     Active Substance: RISPERIDONE
  28. FERROUS SULFATE [Concomitant]
     Active Substance: FERROUS SULFATE
  29. OMEPRAZOLE [Concomitant]
     Active Substance: OMEPRAZOLE
  30. CYMBALTA [Concomitant]
     Active Substance: DULOXETINE HYDROCHLORIDE
  31. DULOXETINE [Concomitant]
     Active Substance: DULOXETINE
  32. SUMATRIPTAN [Concomitant]
     Active Substance: SUMATRIPTAN
  33. MICROLET [ETHINYLESTRADIOL;GESTODENE] [Concomitant]
  34. HYDROXYZINE HYDROCHLORIDE [Concomitant]
     Active Substance: HYDROXYZINE HYDROCHLORIDE
  35. GENERLAC [Concomitant]
     Active Substance: LACTULOSE
  36. KADIAN [Concomitant]
     Active Substance: MORPHINE SULFATE
  37. VENTOLIN HFA [Concomitant]
     Active Substance: ALBUTEROL SULFATE
  38. FUROSEMIDE [Concomitant]
     Active Substance: FUROSEMIDE
  39. SPIRONOLACTONE [Concomitant]
     Active Substance: SPIRONOLACTONE
  40. TEMAZEPAM [Concomitant]
     Active Substance: TEMAZEPAM
  41. GLIPIZIDE [Concomitant]
     Active Substance: GLIPIZIDE
  42. LORAZEPAM [Concomitant]
     Active Substance: LORAZEPAM
  43. TRETINOIN [Concomitant]
     Active Substance: TRETINOIN
  44. SPIRIVA [Concomitant]
     Active Substance: TIOTROPIUM BROMIDE MONOHYDRATE
  45. FENTANYL [Concomitant]
     Active Substance: FENTANYL
  46. DAPSONE [Concomitant]
     Active Substance: DAPSONE
  47. VITAMIN D3 [Concomitant]
     Active Substance: CHOLECALCIFEROL
  48. PREZISTA [Concomitant]
     Active Substance: DARUNAVIR ETHANOLATE
  49. ACETAMINOPHEN [Concomitant]
     Active Substance: ACETAMINOPHEN
  50. AMOXICILLIN [Concomitant]
     Active Substance: AMOXICILLIN
  51. AMPICILLIN [Concomitant]
     Active Substance: AMPICILLIN
  52. ASPIRIN [Concomitant]
     Active Substance: ASPIRIN
  53. CORTISONE [Concomitant]
     Active Substance: CORTISONE
  54. INTERFERON ALFA NOS [Concomitant]
     Active Substance: INTERFERON ALFA-2A OR INTERFERON ALFA-2B
  55. PANTOPRAZOLE [Concomitant]
     Active Substance: PANTOPRAZOLE
  56. PENICILLIN [Concomitant]
     Active Substance: PENICILLIN
  57. CRIXIVAN [Concomitant]
     Active Substance: INDINAVIR SULFATE
  58. RETROVIR [Concomitant]
     Active Substance: ZIDOVUDINE
  59. REYATAZ [Concomitant]
     Active Substance: ATAZANAVIR SULFATE
  60. ALDACTONE [Concomitant]
     Active Substance: SPIRONOLACTONE
  61. FLEET LAXATIVE [Concomitant]
  62. FLUOXETINE [Concomitant]
     Active Substance: FLUOXETINE HYDROCHLORIDE

REACTIONS (11)
  - Multiple fractures [Not Recovered/Not Resolved]
  - Renal impairment [Not Recovered/Not Resolved]
  - Osteoporosis [Not Recovered/Not Resolved]
  - Osteopenia [Not Recovered/Not Resolved]
  - Renal disorder [Unknown]
  - Bone density decreased [Unknown]
  - Emotional distress [Unknown]
  - Anhedonia [Unknown]
  - Economic problem [Unknown]
  - Anxiety [Unknown]
  - Pain [Unknown]

NARRATIVE: CASE EVENT DATE: 20181101
